FAERS Safety Report 23325874 (Version 1)
Quarter: 2023Q4

REPORT INFORMATION
  Report Type: Report from Study
  Country: US (occurrence: US)
  Receive Date: 20231221
  Receipt Date: 20231221
  Transmission Date: 20240109
  Serious: Yes (Death)
  Sender: FDA-Public Use
  Company Number: US-BAYER-2023A182111

PATIENT
  Age: 65 Year
  Sex: Female
  Weight: 62.585 kg

DRUGS (16)
  1. ADEMPAS [Suspect]
     Active Substance: RIOCIGUAT
     Indication: Pulmonary arterial hypertension
     Dosage: UNK
     Dates: start: 20190611
  2. ADEMPAS [Suspect]
     Active Substance: RIOCIGUAT
     Indication: Pulmonary arterial hypertension
     Dosage: 2.5 MG, TID
     Route: 048
  3. OMEPRAZOLE [Concomitant]
     Active Substance: OMEPRAZOLE
  4. SPIRIVA [Concomitant]
     Active Substance: TIOTROPIUM BROMIDE MONOHYDRATE
  5. FOLIC ACID [Concomitant]
     Active Substance: FOLIC ACID
  6. PRENATAL PLUS IRON [Concomitant]
     Active Substance: .ALPHA.-TOCOPHEROL ACETATE, DL-\.BETA.-CAROTENE\ASCORBIC ACID\CALCIUM CARBONATE\CHOLECALCIFEROL\CUPR
  7. ITRACONAZOLE [Concomitant]
     Active Substance: ITRACONAZOLE
  8. CALCIUM CARBONATE\CHOLECALCIFEROL [Concomitant]
     Active Substance: CALCIUM CARBONATE\CHOLECALCIFEROL
  9. COVID-19 VACCINE [Concomitant]
  10. MOBIC [Concomitant]
     Active Substance: MELOXICAM
  11. LEVOTHYROXINE SODIUM [Concomitant]
     Active Substance: LEVOTHYROXINE SODIUM
  12. PREDNISONE [Concomitant]
     Active Substance: PREDNISONE
  13. OXYGEN [Concomitant]
     Active Substance: OXYGEN
  14. TRACLEER [Concomitant]
     Active Substance: BOSENTAN
  15. ACTONEL [Concomitant]
     Active Substance: RISEDRONATE SODIUM
  16. TAPAZOLE [Concomitant]
     Active Substance: METHIMAZOLE

REACTIONS (1)
  - Death [Fatal]

NARRATIVE: CASE EVENT DATE: 20231201
